FAERS Safety Report 16864983 (Version 1)
Quarter: 2019Q3

REPORT INFORMATION
  Report Type: Spontaneous
  Country: US (occurrence: US)
  Receive Date: 20190929
  Receipt Date: 20190929
  Transmission Date: 20191005
  Serious: No
  Sender: FDA-Public Use
  Company Number: US-AMGEN-USASP2019158823

PATIENT
  Age: 68 Year
  Sex: Female

DRUGS (3)
  1. ENBREL [Suspect]
     Active Substance: ETANERCEPT
     Indication: RHEUMATOID ARTHRITIS
     Dosage: 50 MILLIGRAM, QWK
     Route: 065
     Dates: start: 20190912
  2. OXYCODONE [Concomitant]
     Active Substance: OXYCODONE
     Indication: PAIN
     Dosage: 5-3.25 MILLIGRAM
  3. DICYCLOMINE [DICYCLOVERINE HYDROCHLORIDE] [Concomitant]
     Indication: ABDOMINAL DISCOMFORT
     Dosage: 20 MILLIGRAM, TID

REACTIONS (3)
  - Injection site bruising [Unknown]
  - Injection site rash [Unknown]
  - Myalgia [Unknown]

NARRATIVE: CASE EVENT DATE: 20190912
